FAERS Safety Report 7931621-7 (Version None)
Quarter: 2011Q4

REPORT INFORMATION
  Report Type: 
  Country: None (occurrence: None)
  Receive Date: 20111121
  Receipt Date: 20111108
  Transmission Date: 20120403
  Serious: Yes (Hospitalization, Other)
  Sender: FDA-Public Use
  Company Number: PHEH2011US06135

PATIENT
  Sex: Female
  Weight: 56.427 kg

DRUGS (2)
  1. BENADRYL [Concomitant]
  2. GLEEVEC [Suspect]
     Indication: CHRONIC MYELOID LEUKAEMIA
     Dosage: 400 MG, QD
     Route: 048
     Dates: start: 20110526

REACTIONS (14)
  - THYROID NEOPLASM [None]
  - EOSINOPHILIA [None]
  - PAIN [None]
  - RASH PRURITIC [None]
  - DYSPHONIA [None]
  - PULMONARY OEDEMA [None]
  - MASS [None]
  - ARTHRALGIA [None]
  - CHRONIC MYELOID LEUKAEMIA [None]
  - LARYNGEAL MASS [None]
  - SPEECH DISORDER [None]
  - NEOPLASM MALIGNANT [None]
  - HAEMOPTYSIS [None]
  - RASH [None]
